FAERS Safety Report 11855695 (Version 2)
Quarter: 2016Q1

REPORT INFORMATION
  Report Type: Spontaneous
  Country: JP (occurrence: JP)
  Receive Date: 20151221
  Receipt Date: 20160208
  Transmission Date: 20160526
  Serious: Yes (Death)
  Sender: FDA-Public Use
  Company Number: JP-PURDUE PHARMA-GBR-2015-0032859

PATIENT
  Age: 70 Year
  Sex: Female

DRUGS (2)
  1. OXYCODONE HCL PR TABLET [Suspect]
     Active Substance: OXYCODONE HYDROCHLORIDE
     Indication: PAIN
     Dosage: 20 MG, DAILY
     Route: 048
     Dates: start: 2015, end: 20151128
  2. OXYCODONE HCL IR POWDER 0.5% [Suspect]
     Active Substance: OXYCODONE HYDROCHLORIDE
     Indication: PAIN
     Dosage: UNK
     Route: 048
     Dates: start: 2015, end: 20151128

REACTIONS (3)
  - Sepsis [Fatal]
  - Osteomyelitis [Fatal]
  - Off label use [Unknown]

NARRATIVE: CASE EVENT DATE: 2015
